FAERS Safety Report 16945054 (Version 1)
Quarter: 2019Q4

REPORT INFORMATION
  Report Type: Spontaneous
  Country: CA (occurrence: CA)
  Receive Date: 20191022
  Receipt Date: 20191022
  Transmission Date: 20200122
  Serious: Yes (Life-Threatening, Hospitalization)
  Sender: FDA-Public Use
  Company Number: CA-PFIZER INC-2019454558

PATIENT
  Age: 65 Year
  Sex: Male
  Weight: 71 kg

DRUGS (3)
  1. DILANTIN [Suspect]
     Active Substance: PHENYTOIN
     Indication: METASTASES TO CENTRAL NERVOUS SYSTEM
  2. DEXAMETHASONE. [Concomitant]
     Active Substance: DEXAMETHASONE
     Dosage: UNK
  3. DILANTIN [Suspect]
     Active Substance: PHENYTOIN
     Indication: SEIZURE PROPHYLAXIS
     Dosage: 300 MG, 1X/DAY
     Route: 048

REACTIONS (20)
  - Purulent discharge [Recovering/Resolving]
  - Erythema [Recovering/Resolving]
  - Eye disorder [Recovering/Resolving]
  - Hypophagia [Recovering/Resolving]
  - Rash [Recovering/Resolving]
  - Oral disorder [Recovering/Resolving]
  - Eye discharge [Recovering/Resolving]
  - Dermatitis bullous [Recovering/Resolving]
  - Ocular hyperaemia [Recovering/Resolving]
  - Skin disorder [Recovering/Resolving]
  - Stevens-Johnson syndrome [Recovering/Resolving]
  - Condition aggravated [Recovering/Resolving]
  - Oral pain [Recovering/Resolving]
  - Otorrhoea [Recovering/Resolving]
  - Urogenital disorder [Recovering/Resolving]
  - Fluid intake reduced [Recovering/Resolving]
  - Scrotal pain [Recovering/Resolving]
  - Skin exfoliation [Recovering/Resolving]
  - Toxic epidermal necrolysis [Recovering/Resolving]
  - Oral discharge [Recovering/Resolving]
